FAERS Safety Report 9481623 (Version 2)
Quarter: 2013Q3

REPORT INFORMATION
  Report Type: Spontaneous
  Country: US (occurrence: US)
  Receive Date: 20130828
  Receipt Date: 20130828
  Transmission Date: 20140515
  Serious: Yes (Hospitalization, Other)
  Sender: FDA-Public Use
  Company Number: US-AMGEN-KDL163973

PATIENT
  Age: 72 Year
  Sex: Female

DRUGS (4)
  1. ENBREL [Suspect]
     Indication: RHEUMATOID ARTHRITIS
     Dosage: 50 MG, QWK
     Route: 058
     Dates: start: 20051018, end: 20051101
  2. ENBREL [Suspect]
     Indication: PSORIATIC ARTHROPATHY
  3. METHOTREXATE [Concomitant]
     Dosage: 20 MG, QWK
     Route: 048
     Dates: start: 2000
  4. MINOCYCLINE [Concomitant]
     Dosage: UNK UNK, UNK
     Dates: start: 2000

REACTIONS (11)
  - Chest pain [Recovered/Resolved]
  - Catheterisation cardiac [Unknown]
  - Tooth infection [Unknown]
  - Blindness [Recovered/Resolved]
  - Eye haemorrhage [Unknown]
  - Wrist fracture [Unknown]
  - Tooth disorder [Unknown]
  - Arthralgia [Unknown]
  - Musculoskeletal stiffness [Unknown]
  - Contusion [Unknown]
  - Osteonecrosis of jaw [Recovering/Resolving]
